FAERS Safety Report 6411880-2 (Version None)
Quarter: 2009Q4

REPORT INFORMATION
  Report Type: 
  Country: None (occurrence: None)
  Receive Date: 20091023
  Receipt Date: 20091013
  Transmission Date: 20100525
  Serious: Yes (Hospitalization)
  Sender: FDA-Public Use
  Company Number: US-JNJFOC-20091004897

PATIENT
  Sex: Female

DRUGS (1)
  1. REMICADE [Suspect]
     Indication: COLITIS ULCERATIVE
     Route: 042
     Dates: start: 20090901

REACTIONS (4)
  - ARTHROPATHY [None]
  - BLOOD GLUCOSE ABNORMAL [None]
  - BLOOD PRESSURE INCREASED [None]
  - LIVER DISORDER [None]
